FAERS Safety Report 6014198-5 (Version None)
Quarter: 2008Q4

REPORT INFORMATION
  Report Type: 
  Country: None (occurrence: None)
  Receive Date: 20081219
  Receipt Date: 20080304
  Transmission Date: 20090506
  Serious: No
  Sender: FDA-Public Use
  Company Number: A0708730A

PATIENT
  Age: 72 Year
  Sex: Male

DRUGS (10)
  1. AVODART [Suspect]
     Indication: BENIGN PROSTATIC HYPERPLASIA
     Dosage: .5MG PER DAY
     Route: 048
     Dates: start: 20071101, end: 20080201
  2. HYTRIN [Concomitant]
  3. AVANDIA [Concomitant]
  4. COREG [Concomitant]
  5. FLONASE [Concomitant]
  6. ZOCOR [Concomitant]
  7. GLUCOTROL [Concomitant]
  8. ZYRTEC [Concomitant]
  9. NORVASC [Concomitant]
  10. ACCUPRIL [Concomitant]

REACTIONS (1)
  - POLLAKIURIA [None]
